FAERS Safety Report 5407372-X (Version None)
Quarter: 2007Q3

REPORT INFORMATION
  Report Type: 
  Country: None (occurrence: None)
  Receive Date: 20070731
  Receipt Date: 20070720
  Transmission Date: 20080115
  Serious: Yes (Other)
  Sender: FDA-Public Use
  Company Number: CHNY2007FR02633

PATIENT
  Age: 13 Year
  Sex: Male
  Weight: 34 kg

DRUGS (1)
  1. TERBINAFINE HCL [Suspect]
     Indication: FUNGAL INFECTION
     Dosage: SINGLE APPLICATION, TOPICAL
     Route: 061
     Dates: start: 20070711, end: 20070711

REACTIONS (3)
  - INCORRECT DOSE ADMINISTERED [None]
  - PRURITUS [None]
  - RASH VESICULAR [None]
